FAERS Safety Report 15558479 (Version 1)
Quarter: 2018Q4

REPORT INFORMATION
  Report Type: Spontaneous
  Country: US (occurrence: US)
  Receive Date: 20181026
  Receipt Date: 20181026
  Transmission Date: 20190205
  Serious: Yes (Hospitalization, Disabling)
  Sender: FDA-Public Use
  Company Number: None

PATIENT
  Age: 44 Year
  Sex: Male
  Weight: 90 kg

DRUGS (1)
  1. ALPRAZOLAM. [Suspect]
     Active Substance: ALPRAZOLAM
     Indication: INSOMNIA
     Route: 048
     Dates: start: 20011010, end: 20180103

REACTIONS (12)
  - Hot flush [None]
  - Irritability [None]
  - Fatigue [None]
  - Dizziness [None]
  - Muscle atrophy [None]
  - Depression [None]
  - Nausea [None]
  - Pancreatitis [None]
  - Aggression [None]
  - Visual impairment [None]
  - Muscle twitching [None]
  - Agoraphobia [None]

NARRATIVE: CASE EVENT DATE: 20180103
